FAERS Safety Report 19264676 (Version 1)
Quarter: 2021Q2

REPORT INFORMATION
  Report Type: Other
  Country: CA (occurrence: CA)
  Receive Date: 20210517
  Receipt Date: 20210517
  Transmission Date: 20210717
  Serious: Yes (Hospitalization, Other)
  Sender: FDA-Public Use
  Company Number: CA-APOTEX-2021AP011513

PATIENT
  Sex: Female

DRUGS (2)
  1. NUCALA [Concomitant]
     Active Substance: MEPOLIZUMAB
     Indication: ASTHMA
     Dosage: 100 MILLIGRAM
     Route: 065
  2. SALBUTAMOL [Suspect]
     Active Substance: ALBUTEROL
     Indication: PRODUCT USED FOR UNKNOWN INDICATION
     Dosage: UNK
     Route: 065

REACTIONS (12)
  - Eosinophilic granulomatosis with polyangiitis [Recovered/Resolved]
  - Multiple sclerosis [Recovered/Resolved]
  - COVID-19 [Recovered/Resolved]
  - Pulmonary congestion [Recovered/Resolved]
  - Coma [Recovered/Resolved]
  - Productive cough [Recovered/Resolved]
  - Vasculitis [Recovered/Resolved]
  - Malaise [Recovered/Resolved]
  - Autoimmune disorder [Recovered/Resolved]
  - Pneumonia [Recovered/Resolved]
  - Therapy interrupted [Recovered/Resolved]
  - Pyrexia [Recovered/Resolved]
